FAERS Safety Report 4488412-1 (Version None)
Quarter: 2004Q4

REPORT INFORMATION
  Report Type: 
  Country: None (occurrence: None)
  Receive Date: 20041026
  Receipt Date: 20041015
  Transmission Date: 20050328
  Serious: Yes (Hospitalization)
  Sender: FDA-Public Use
  Company Number: 175782

PATIENT
  Age: 59 Year
  Sex: Female
  Weight: 55.3388 kg

DRUGS (4)
  1. AVONEX [Suspect]
     Indication: MULTIPLE SCLEROSIS
     Dosage: 30 MCG QW IM
     Route: 030
     Dates: start: 19960101
  2. LIPITOR [Concomitant]
  3. ACIPHEX [Concomitant]
  4. PREDNISONE [Concomitant]

REACTIONS (10)
  - AORTIC VALVE DISEASE [None]
  - ATRIAL FIBRILLATION [None]
  - BLOOD PRESSURE DECREASED [None]
  - BONE DISORDER [None]
  - CHOLELITHIASIS [None]
  - CONDITION AGGRAVATED [None]
  - CYSTITIS [None]
  - DUODENAL ULCER HAEMORRHAGE [None]
  - INFLUENZA LIKE ILLNESS [None]
  - MULTIPLE SCLEROSIS [None]
